FAERS Safety Report 6466379-4 (Version None)
Quarter: 2009Q4

REPORT INFORMATION
  Report Type: 
  Country: None (occurrence: None)
  Receive Date: 20091202
  Receipt Date: 20091123
  Transmission Date: 20100525
  Serious: Yes (Other)
  Sender: FDA-Public Use
  Company Number: BR-ASTRAZENECA-2009SE28527

PATIENT
  Age: 69 Year
  Sex: Female
  Weight: 85 kg

DRUGS (6)
  1. NOLVADEX [Suspect]
     Indication: BREAST CANCER
     Route: 048
     Dates: start: 20081201, end: 20091013
  2. LASIX [Concomitant]
     Indication: MITRAL VALVE INCOMPETENCE
     Route: 048
     Dates: start: 20080101
  3. CAVERDILOL [Concomitant]
     Indication: MITRAL VALVE INCOMPETENCE
     Route: 048
     Dates: start: 20080101
  4. LOSARTAN POTASSIUM [Concomitant]
     Indication: MITRAL VALVE INCOMPETENCE
     Route: 048
     Dates: start: 20080101
  5. ASA PEDIATRIC [Concomitant]
     Indication: MITRAL VALVE INCOMPETENCE
     Route: 048
     Dates: start: 20080101
  6. SYNTHROID [Concomitant]
     Indication: THYROID NEOPLASM
     Dates: start: 20040101

REACTIONS (3)
  - DYSPNOEA [None]
  - HOT FLUSH [None]
  - MITRAL VALVE INCOMPETENCE [None]
